FAERS Safety Report 4407585-X (Version None)
Quarter: 2004Q3

REPORT INFORMATION
  Report Type: 
  Country: None (occurrence: None)
  Receive Date: 20040721
  Receipt Date: 20040708
  Transmission Date: 20050211
  Serious: Yes (Hospitalization)
  Sender: FDA-Public Use
  Company Number: 2004AP03577

PATIENT
  Age: 78 Year
  Sex: Female

DRUGS (5)
  1. DIPRIVAN [Suspect]
     Indication: SEDATION
     Dosage: 1 % IV
     Route: 042
  2. FENTANEST [Concomitant]
  3. HORIZON [Concomitant]
  4. DOPAMINE HCL [Concomitant]
  5. NEOPHYLLIN [Concomitant]

REACTIONS (2)
  - DELAYED RECOVERY FROM ANAESTHESIA [None]
  - UNRESPONSIVE TO PAIN STIMULI [None]
